FAERS Safety Report 18015682 (Version 1)
Quarter: 2020Q3

REPORT INFORMATION
  Report Type: Report from Study
  Country: US (occurrence: US)
  Receive Date: 20200713
  Receipt Date: 20200713
  Transmission Date: 20201103
  Serious: Yes (Death)
  Sender: FDA-Public Use
  Company Number: US-JNJFOC-20200703687

PATIENT
  Sex: Male
  Weight: 86.6 kg

DRUGS (16)
  1. PROCHLORPERAZINE. [Concomitant]
     Active Substance: PROCHLORPERAZINE
  2. METFORMIN [Concomitant]
     Active Substance: METFORMIN HYDROCHLORIDE
  3. DOLOPHINE [Suspect]
     Active Substance: METHADONE HYDROCHLORIDE
     Indication: PRODUCT USED FOR UNKNOWN INDICATION
     Route: 065
  4. JANUVIA [Concomitant]
     Active Substance: SITAGLIPTIN PHOSPHATE
  5. MIRALAX [Concomitant]
     Active Substance: POLYETHYLENE GLYCOL 3350
  6. ROXICODONE [Suspect]
     Active Substance: OXYCODONE HYDROCHLORIDE
     Indication: PRODUCT USED FOR UNKNOWN INDICATION
     Route: 065
  7. BELLADONNA EXTRACT [Suspect]
     Active Substance: BELLADONNA LEAF\HOMEOPATHICS
     Indication: PRODUCT USED FOR UNKNOWN INDICATION
     Route: 065
  8. BACLOFEN. [Concomitant]
     Active Substance: BACLOFEN
  9. DETROL LA [Concomitant]
     Active Substance: TOLTERODINE TARTRATE
  10. ERDAFITINIB. [Suspect]
     Active Substance: ERDAFITINIB
     Indication: PANCREATIC CARCINOMA
     Route: 048
     Dates: start: 20190117, end: 20190129
  11. SERTRALINE [Concomitant]
     Active Substance: SERTRALINE HYDROCHLORIDE
  12. ATIVAN [Suspect]
     Active Substance: LORAZEPAM
     Indication: PRODUCT USED FOR UNKNOWN INDICATION
     Route: 065
  13. MORPHINE [Suspect]
     Active Substance: MORPHINE
     Indication: PRODUCT USED FOR UNKNOWN INDICATION
     Route: 065
  14. LIPITOR [Concomitant]
     Active Substance: ATORVASTATIN CALCIUM
  15. LOMOTIL [Concomitant]
     Active Substance: ATROPINE SULFATE\DIPHENOXYLATE HYDROCHLORIDE
  16. PRILOSEC [Concomitant]
     Active Substance: OMEPRAZOLE MAGNESIUM

REACTIONS (1)
  - Disease progression [Fatal]

NARRATIVE: CASE EVENT DATE: 20190214
